FAERS Safety Report 14148764 (Version 2)
Quarter: 2017Q4

REPORT INFORMATION
  Report Type: Spontaneous
  Country: IT (occurrence: IT)
  Receive Date: 20171101
  Receipt Date: 20171102
  Transmission Date: 20180321
  Serious: Yes (Life-Threatening)
  Sender: FDA-Public Use
  Company Number: IT-BAYER-2017-205019

PATIENT
  Age: 84 Year
  Sex: Male

DRUGS (1)
  1. CIPROFLOXACIN. [Suspect]
     Active Substance: CIPROFLOXACIN
     Indication: KIDNEY INFECTION
     Dosage: 500 MG, BID
     Dates: start: 20041103, end: 20041104

REACTIONS (3)
  - Rhabdomyolysis [Unknown]
  - Tachycardia [Unknown]
  - Syncope [Unknown]

NARRATIVE: CASE EVENT DATE: 20041104
